FAERS Safety Report 22147584 (Version 1)
Quarter: 2023Q1

REPORT INFORMATION
  Report Type: Spontaneous
  Country: CN (occurrence: CN)
  Receive Date: 20230328
  Receipt Date: 20230328
  Transmission Date: 20230418
  Serious: Yes (Hospitalization, Other)
  Sender: FDA-Public Use
  Company Number: None

PATIENT
  Age: 62 Year
  Sex: Male
  Weight: 53 kg

DRUGS (9)
  1. CYCLOPHOSPHAMIDE [Suspect]
     Active Substance: CYCLOPHOSPHAMIDE
     Indication: Diffuse large B-cell lymphoma stage IV
     Dosage: 1.1 G, QD, 30-40GTT/MIN, DILUTED WITH 0.9% OF NS 500ML, AS A PART OF R-CHOP REGIMEN
     Route: 041
     Dates: start: 20230311, end: 20230311
  2. SODIUM CHLORIDE [Suspect]
     Active Substance: SODIUM CHLORIDE
     Indication: Medication dilution
     Dosage: 500 ML, QD, 30-40GTT/MIN USED TO DILUTE 1.1 G CYCLOPHOSPHAMIDE, AS A PART OF R-CHOP REGIMEN
     Route: 041
     Dates: start: 20230311, end: 20230311
  3. SODIUM CHLORIDE [Suspect]
     Active Substance: SODIUM CHLORIDE
     Dosage: 500 ML, QD, 30-40GTT/MIN USED TO DILUTE 0.5 G RITUXIMAB, AS A PART OF R-CHOP REGIMEN
     Route: 041
     Dates: start: 20230310, end: 20230310
  4. SODIUM CHLORIDE [Suspect]
     Active Substance: SODIUM CHLORIDE
     Dosage: 60 ML, QD USED TO DILUTE70 MG DOXORUBICIN, AS A PART OF R-CHOP REGIMEN
     Route: 042
     Dates: start: 20230311, end: 20230311
  5. SODIUM CHLORIDE [Suspect]
     Active Substance: SODIUM CHLORIDE
     Dosage: 20 ML, QD USED TO DILUTE 4 MG VINDESINE, AS A PART OF R-CHOP REGIMEN
     Route: 042
     Dates: start: 20230311, end: 20230311
  6. RITUXIMAB [Suspect]
     Active Substance: RITUXIMAB
     Indication: Diffuse large B-cell lymphoma stage IV
     Dosage: 0.5 G, QD, 30-40GTT/MIN DILUTED WITH 0.9% 500 ML SODIUM CHLORIDE, AS A PART OF R-CHOP REGIMEN
     Route: 041
     Dates: start: 20230310, end: 20230310
  7. DOXORUBICIN HYDROCHLORIDE [Suspect]
     Active Substance: DOXORUBICIN HYDROCHLORIDE
     Indication: Diffuse large B-cell lymphoma stage IV
     Dosage: 70 MG, QD DILUTED WITH 0.9% OF SODIUM CHLORIDE 60 ML, AS A PART OF R-CHOP REGIMEN
     Route: 042
     Dates: start: 20230311, end: 20230311
  8. VINDESINE SULFATE [Suspect]
     Active Substance: VINDESINE SULFATE
     Indication: Diffuse large B-cell lymphoma stage IV
     Dosage: 4 MG, QD DILUTED WITH 0.9% OF SODIUM CHLORIDE 20 ML, AS A PART OF R-CHOP REGIMEN
     Route: 042
     Dates: start: 20230311, end: 20230311
  9. PREDNISONE [Suspect]
     Active Substance: PREDNISONE
     Indication: Diffuse large B-cell lymphoma stage IV
     Dosage: AS A PART OF R-CHOP REGIMEN
     Route: 065
     Dates: start: 20230311, end: 20230311

REACTIONS (4)
  - Red blood cell count decreased [Recovering/Resolving]
  - Platelet count decreased [Recovering/Resolving]
  - Haemoglobin decreased [Recovering/Resolving]
  - Myelosuppression [Unknown]

NARRATIVE: CASE EVENT DATE: 20230313
